FAERS Safety Report 5813029-3 (Version None)
Quarter: 2008Q3

REPORT INFORMATION
  Report Type: 
  Country: None (occurrence: None)
  Receive Date: 20080717
  Receipt Date: 20071105
  Transmission Date: 20090109
  Serious: No
  Sender: FDA-Public Use
  Company Number: A0691415A

PATIENT
  Age: 35 Year
  Sex: Female

DRUGS (1)
  1. NICORETTE [Suspect]
     Dates: start: 20071102

REACTIONS (4)
  - CHEST DISCOMFORT [None]
  - HEADACHE [None]
  - RETCHING [None]
  - THROAT TIGHTNESS [None]
